FAERS Safety Report 25526325 (Version 2)
Quarter: 2025Q3

REPORT INFORMATION
  Report Type: Report from Study
  Country: EU (occurrence: EU)
  Receive Date: 20250707
  Receipt Date: 20250710
  Transmission Date: 20251020
  Serious: Yes (Other)
  Sender: PFIZER
  Company Number: EU-TAKEDA-2023TUS042656

PATIENT
  Age: 26 Year
  Sex: Male
  Weight: 83 kg

DRUGS (1)
  1. BRENTUXIMAB VEDOTIN [Suspect]
     Active Substance: BRENTUXIMAB VEDOTIN
     Indication: Hodgkin^s disease refractory
     Dosage: Q3WEEKS
     Route: 042
     Dates: start: 20220308

REACTIONS (4)
  - Polyneuropathy [Unknown]
  - Neuropathy peripheral [Unknown]
  - Granuloma skin [Recovered/Resolved]
  - Skin fibrosis [Recovered/Resolved]

NARRATIVE: CASE EVENT DATE: 20220531
